FAERS Safety Report 12282846 (Version 1)
Quarter: 2016Q2

REPORT INFORMATION
  Report Type: Report from Study
  Country: US (occurrence: US)
  Receive Date: 20160419
  Receipt Date: 20160419
  Transmission Date: 20160815
  Serious: No
  Sender: FDA-Public Use
  Company Number: US-AMGEN-USASP2016044145

PATIENT
  Age: 47 Year
  Sex: Female

DRUGS (4)
  1. CORLANOR [Suspect]
     Active Substance: IVABRADINE HYDROCHLORIDE
     Indication: CARDIAC DISORDER
  2. CORLANOR [Suspect]
     Active Substance: IVABRADINE HYDROCHLORIDE
     Indication: SINUS TACHYCARDIA
     Dosage: 5 MG, BID
     Route: 048
     Dates: start: 20151207
  3. XANAX [Concomitant]
     Active Substance: ALPRAZOLAM
     Indication: SLEEP DISORDER
     Dosage: UNK
     Route: 065
  4. FLEXERIL [Concomitant]
     Active Substance: CYCLOBENZAPRINE HYDROCHLORIDE
     Indication: HYPOTONIA
     Dosage: UNK 6 DAYS A MONTH

REACTIONS (11)
  - Sleep disorder [Unknown]
  - Erythema [Unknown]
  - Dyspnoea [Unknown]
  - Pruritus [Unknown]
  - Nausea [Unknown]
  - Fatigue [Unknown]
  - Dry skin [Unknown]
  - Amenorrhoea [Unknown]
  - Heart rate increased [Unknown]
  - Corrective lens user [Unknown]
  - Visual impairment [Unknown]
